FAERS Safety Report 9311131 (Version 1)
Quarter: 2013Q2

REPORT INFORMATION
  Report Type: Spontaneous
  Country: US (occurrence: None)
  Receive Date: 20130523
  Receipt Date: 20130523
  Transmission Date: 20140414
  Serious: No
  Sender: FDA-Public Use
  Company Number: None

PATIENT
  Age: 58 Year
  Sex: Female

DRUGS (1)
  1. MULTIPLE CAM PRODUCTS [Suspect]
     Dates: start: 201005, end: 20110114

REACTIONS (4)
  - Hepatic steatosis [None]
  - Hepatic fibrosis [None]
  - Liver disorder [None]
  - Inflammation [None]
